FAERS Safety Report 5279667-4 (Version None)
Quarter: 2007Q1

REPORT INFORMATION
  Report Type: 
  Country: None (occurrence: None)
  Receive Date: 20070323
  Receipt Date: 20070312
  Transmission Date: 20070707
  Serious: Yes (Death)
  Sender: FDA-Public Use
  Company Number: 238249

PATIENT
  Age: 11 Year
  Sex: Male

DRUGS (1)
  1. NUTROPIN [Suspect]
     Indication: GROWTH HORMONE DEFICIENCY
     Dosage: 0.6 MG, 7/WEEK, SUBCUTANEOUS
     Route: 058
     Dates: start: 20061115

REACTIONS (1)
  - MICROCEPHALY [None]
